FAERS Safety Report 12283423 (Version 8)
Quarter: 2017Q3

REPORT INFORMATION
  Report Type: Report from Study
  Country: US (occurrence: US)
  Receive Date: 20160419
  Receipt Date: 20170713
  Transmission Date: 20171127
  Serious: Yes (Death, Hospitalization)
  Sender: FDA-Public Use
  Company Number: US-ACTELION-A-NJ2016-134472

PATIENT
  Age: 46 Year
  Sex: Female
  Weight: 65.76 kg

DRUGS (5)
  1. ADEMPAS [Concomitant]
     Active Substance: RIOCIGUAT
  2. UPTRAVI [Suspect]
     Active Substance: SELEXIPAG
     Dosage: 400 MCG, BID
     Route: 048
     Dates: start: 20160509
  3. ELIQUIS [Concomitant]
     Active Substance: APIXABAN
  4. UPTRAVI [Suspect]
     Active Substance: SELEXIPAG
     Indication: PULMONARY ARTERIAL HYPERTENSION
     Dosage: 200 MCG, BID
     Route: 048
     Dates: start: 20160311, end: 2016
  5. LETAIRIS [Concomitant]
     Active Substance: AMBRISENTAN

REACTIONS (17)
  - Haemoglobin decreased [Unknown]
  - Dyspnoea [Unknown]
  - Weight increased [Unknown]
  - Swelling [Unknown]
  - Fluid retention [Unknown]
  - Pulmonary arterial hypertension [Unknown]
  - Anaemia [Unknown]
  - Cardiac failure congestive [Unknown]
  - Transfusion [Unknown]
  - Inflammation [Unknown]
  - Intra-abdominal fluid collection [Unknown]
  - Gastric ulcer haemorrhage [Unknown]
  - Abdominal cavity drainage [Unknown]
  - Death [Fatal]
  - Oedema [Unknown]
  - Peripheral swelling [Unknown]
  - Oxygen saturation decreased [Unknown]

NARRATIVE: CASE EVENT DATE: 201604
